FAERS Safety Report 8246089-3 (Version None)
Quarter: 2012Q1

REPORT INFORMATION
  Report Type: 
  Country: None (occurrence: None)
  Receive Date: 20120330
  Receipt Date: 20120326
  Transmission Date: 20120608
  Serious: Yes (Life-Threatening, Other)
  Sender: FDA-Public Use
  Company Number: PHHY2012JP026039

PATIENT
  Sex: Male

DRUGS (10)
  1. LEVOFLOXACIN [Concomitant]
     Route: 048
  2. MUCOSTA [Concomitant]
     Route: 048
  3. OMEPRAZOLE [Concomitant]
     Route: 048
  4. CLOSTRIDIUM BUTYRICUM [Concomitant]
     Route: 048
  5. MEROPENEM [Concomitant]
     Route: 041
  6. ZYVOX [Concomitant]
     Route: 041
  7. SANDIMMUNE [Suspect]
     Indication: PROPHYLAXIS AGAINST GRAFT VERSUS HOST DISEASE
     Route: 042
  8. FLUCONAZOLE [Concomitant]
     Route: 048
  9. ACYCLOVIR [Concomitant]
     Route: 048
  10. AZACTAM [Concomitant]
     Route: 042

REACTIONS (4)
  - ASPARTATE AMINOTRANSFERASE INCREASED [None]
  - RHABDOMYOLYSIS [None]
  - TOXIC SKIN ERUPTION [None]
  - BLOOD LACTATE DEHYDROGENASE INCREASED [None]
